FAERS Safety Report 8052943-8 (Version None)
Quarter: 2012Q1

REPORT INFORMATION
  Report Type: 
  Country: None (occurrence: None)
  Receive Date: 20120118
  Receipt Date: 20120112
  Transmission Date: 20120608
  Serious: Yes (Hospitalization)
  Sender: FDA-Public Use
  Company Number: IE-MEDIMMUNE-MEDI-0014461

PATIENT
  Sex: Female

DRUGS (3)
  1. SYNAGIS [Suspect]
     Route: 030
     Dates: start: 20111021, end: 20111021
  2. FUROSEMIDE [Concomitant]
  3. SPIRONOLACTONE [Concomitant]

REACTIONS (1)
  - INFLUENZA [None]
